FAERS Safety Report 9985040 (Version 1)
Quarter: 2014Q1

REPORT INFORMATION
  Report Type: Report from Study
  Country: US (occurrence: US)
  Receive Date: 20140307
  Receipt Date: 20140307
  Transmission Date: 20141002
  Serious: No
  Sender: FDA-Public Use
  Company Number: US-ABBVIE-14P-163-1187675-00

PATIENT
  Age: 27 Year
  Sex: Male

DRUGS (6)
  1. HUMIRA [Suspect]
     Indication: CROHN^S DISEASE
     Dates: start: 20131029
  2. BUDESONIDE [Concomitant]
     Indication: CROHN^S DISEASE
  3. BUSPAR [Concomitant]
     Indication: ANXIETY
  4. TENEX [Concomitant]
     Indication: ANXIETY
     Dosage: AT BEDTIME
  5. TENEX [Concomitant]
     Indication: INSOMNIA
  6. MERCAPTOPURINE [Concomitant]
     Indication: PRODUCT USED FOR UNKNOWN INDICATION

REACTIONS (1)
  - Injection site pain [Recovered/Resolved]
